FAERS Safety Report 4909782-3 (Version None)
Quarter: 2006Q1

REPORT INFORMATION
  Report Type: 
  Country: None (occurrence: None)
  Receive Date: 20060208
  Receipt Date: 20060126
  Transmission Date: 20060701
  Serious: Yes (Hospitalization)
  Sender: FDA-Public Use
  Company Number: 2005151170

PATIENT
  Sex: Female

DRUGS (15)
  1. FELDENE [Suspect]
     Indication: PAIN
     Dates: start: 20050217, end: 20050912
  2. MOTRIN [Suspect]
     Indication: PAIN
     Dates: start: 20050217, end: 20050912
  3. SPIRONOLACTONE [Concomitant]
  4. PRINIVIL [Concomitant]
  5. PRILOSEC [Concomitant]
  6. SINEMET [Concomitant]
  7. ALBUTEROL [Concomitant]
  8. CLOBETASOL PROPIONATE (CLOBETASOL PROPIONATE) [Concomitant]
  9. NITROGLYCERIN [Concomitant]
  10. ACETAMINOPHEN [Concomitant]
  11. PREDNISONE [Concomitant]
  12. OPCON A (NAPHAZOLINE HYDROCHLORIDE, PHENIRAMINE MALEATE) [Concomitant]
  13. ESTRADIOL [Concomitant]
  14. PROVERA [Concomitant]
  15. LEVOTHROID [Concomitant]

REACTIONS (2)
  - COLITIS ISCHAEMIC [None]
  - LOWER GASTROINTESTINAL HAEMORRHAGE [None]
